FAERS Safety Report 5282281-8 (Version None)
Quarter: 2007Q1

REPORT INFORMATION
  Report Type: 
  Country: None (occurrence: None)
  Receive Date: 20070331
  Receipt Date: 20070319
  Transmission Date: 20070707
  Serious: Yes (Other)
  Sender: FDA-Public Use
  Company Number: JP-PFIZER INC-2007023392

PATIENT
  Age: 70 Year
  Sex: Male

DRUGS (4)
  1. DETRUSITOL SR [Suspect]
     Indication: POLLAKIURIA
     Dosage: DAILY DOSE:2MG
     Route: 048
     Dates: start: 20061225, end: 20070312
  2. MUCODYNE [Concomitant]
     Route: 048
  3. THEOLONG [Concomitant]
     Route: 048
  4. TAMSULOSIN HCL [Concomitant]
     Route: 048

REACTIONS (1)
  - HYPERTENSION [None]
